FAERS Safety Report 13292392 (Version 1)
Quarter: 2017Q1

REPORT INFORMATION
  Report Type: Spontaneous
  Country: IE (occurrence: IE)
  Receive Date: 20170303
  Receipt Date: 20170303
  Transmission Date: 20170428
  Serious: Yes (Other)
  Sender: FDA-Public Use
  Company Number: IE-PFIZER INC-2017089528

PATIENT
  Age: 19 Year
  Sex: Female

DRUGS (1)
  1. OVRANETTE [Suspect]
     Active Substance: ETHINYL ESTRADIOL\LEVONORGESTREL

REACTIONS (2)
  - Hemianopia homonymous [Unknown]
  - Migraine with aura [Unknown]
